FAERS Safety Report 7642080-6 (Version None)
Quarter: 2011Q3

REPORT INFORMATION
  Report Type: 
  Country: None (occurrence: None)
  Receive Date: 20110727
  Receipt Date: 20110727
  Transmission Date: 20111222
  Serious: Yes (Disabling, Other)
  Sender: FDA-Public Use
  Company Number: None

PATIENT
  Age: 77 Year
  Sex: Male
  Weight: 86.1834 kg

DRUGS (2)
  1. VANCOMYCIN [Suspect]
     Dosage: 2 DRIPS 2 DAYS INTRAVENOUS
     Route: 042
     Dates: start: 20100311, end: 20100312
  2. LEVAQUIN [Suspect]
     Dosage: 500 MG 1X 32 DAYS PILLS
     Route: 048
     Dates: start: 20100313, end: 20100413

REACTIONS (4)
  - ARTHRALGIA [None]
  - PAIN IN EXTREMITY [None]
  - JOINT SWELLING [None]
  - OEDEMA PERIPHERAL [None]
